FAERS Safety Report 8593792-1 (Version None)
Quarter: 2012Q3

REPORT INFORMATION
  Report Type: 
  Country: None (occurrence: None)
  Receive Date: 20120814
  Receipt Date: 20120719
  Transmission Date: 20120928
  Serious: Yes (Other)
  Sender: FDA-Public Use
  Company Number: CN-BAXTER-2012BAX012358

PATIENT
  Sex: Female
  Weight: 70 kg

DRUGS (1)
  1. MANNITOL [Suspect]
     Route: 041
     Dates: start: 20101102, end: 20101102

REACTIONS (3)
  - COMA [None]
  - CHILLS [None]
  - HYPERPYREXIA [None]
